FAERS Safety Report 4582020-X (Version None)
Quarter: 2005Q1

REPORT INFORMATION
  Report Type: 
  Country: None (occurrence: None)
  Receive Date: 20050119
  Receipt Date: 20040707
  Transmission Date: 20050727
  Serious: Yes (Hospitalization)
  Sender: FDA-Public Use
  Company Number: A03200402253

PATIENT
  Age: 82 Year

DRUGS (4)
  1. PLAVIX [Suspect]
     Indication: STENT PLACEMENT
     Dosage: 75 MG QD - ORAL
     Route: 048
     Dates: start: 20040514
  2. ASPIRIN [Suspect]
     Dosage: 325 MG QD -ORAL
     Route: 048
  3. BIVALIRUDIN [Concomitant]
  4. EPTIFIBATIDE [Concomitant]

REACTIONS (2)
  - HAEMOGLOBIN DECREASED [None]
  - SMALL INTESTINAL HAEMORRHAGE [None]
